FAERS Safety Report 10012430 (Version 1)
Quarter: 2014Q1

REPORT INFORMATION
  Report Type: Spontaneous
  Country: US (occurrence: US)
  Receive Date: 20140312
  Receipt Date: 20140312
  Transmission Date: 20141002
  Serious: No
  Sender: FDA-Public Use
  Company Number: US-PFIZER INC-2014067799

PATIENT
  Age: 73 Year
  Sex: Female
  Weight: 81.63 kg

DRUGS (3)
  1. IBUPROFEN [Suspect]
     Indication: ARTHRITIS
     Dosage: 800 MG, UNK
  2. IBUPROFEN [Suspect]
     Indication: SPONDYLITIS
     Dosage: UNK
     Dates: end: 2014
  3. XANAX [Concomitant]
     Indication: ANXIETY
     Dosage: UNK, AS NEEDED

REACTIONS (3)
  - Drug ineffective [Unknown]
  - Arthritis [Unknown]
  - Thyroid disorder [Unknown]
